FAERS Safety Report 12648282 (Version 1)
Quarter: 2016Q3

REPORT INFORMATION
  Report Type: Spontaneous
  Country: ES (occurrence: ES)
  Receive Date: 20160812
  Receipt Date: 20160812
  Transmission Date: 20161109
  Serious: Yes (Life-Threatening)
  Sender: FDA-Public Use
  Company Number: ES-TEVA-682868ISR

PATIENT
  Age: 52 Year
  Sex: Male

DRUGS (2)
  1. DESMOPRESINA TEVA 0.2 MG COMPRIMIDOS EFG, 30 COMPRIMIDOS [Suspect]
     Active Substance: DESMOPRESSIN
     Route: 048
     Dates: start: 20130720, end: 20130808
  2. MINURIN [Concomitant]
     Active Substance: DESMOPRESSIN ACETATE
     Dates: start: 20130720, end: 20130808

REACTIONS (2)
  - Investigation abnormal [Recovered/Resolved]
  - Hyponatraemia [Recovered/Resolved]

NARRATIVE: CASE EVENT DATE: 20130720
